FAERS Safety Report 8342011-X (Version None)
Quarter: 2012Q1

REPORT INFORMATION
  Report Type: 
  Country: None (occurrence: None)
  Receive Date: 20120330
  Receipt Date: 20030910
  Transmission Date: 20120608
  Serious: Yes (Other)
  Sender: FDA-Public Use
  Company Number: PHHY2003US005082

PATIENT
  Age: 76 Year
  Sex: Male

DRUGS (1)
  1. EXELON [Suspect]

REACTIONS (3)
  - CORONARY ARTERY OCCLUSION [None]
  - CHEST PAIN [None]
  - CHEST DISCOMFORT [None]
